FAERS Safety Report 15887472 (Version 1)
Quarter: 2019Q1

REPORT INFORMATION
  Report Type: Spontaneous
  Country: FR (occurrence: FR)
  Receive Date: 20190130
  Receipt Date: 20190130
  Transmission Date: 20190417
  Serious: Yes (Other)
  Sender: FDA-Public Use
  Company Number: FR-TEVA-2019-FR-1004055

PATIENT
  Age: 37 Year
  Sex: Female
  Weight: 61 kg

DRUGS (1)
  1. CHLORHYDRATE DE VALACICLOVIR [Suspect]
     Active Substance: VALACYCLOVIR HYDROCHLORIDE
     Indication: ORAL HERPES
     Dosage: 1000 MILLIGRAM DAILY;
     Route: 048
     Dates: start: 201811

REACTIONS (4)
  - Nausea [Recovered/Resolved]
  - Confusional state [Recovered/Resolved]
  - Vertigo [Recovered/Resolved]
  - Palpitations [Recovered/Resolved]

NARRATIVE: CASE EVENT DATE: 201811
